FAERS Safety Report 4524614-3 (Version None)
Quarter: 2005Q1

REPORT INFORMATION
  Report Type: 
  Country: None (occurrence: None)
  Receive Date: 20041117
  Receipt Date: 20040305
  Transmission Date: 20050727
  Serious: Yes (Disabling, Other)
  Sender: FDA-Public Use
  Company Number: NSADSS2002003067

PATIENT
  Age: 75 Year
  Sex: Male

DRUGS (1)
  1. LEVAQUIN [Suspect]
     Indication: PNEUMONIA
     Dosage: 500 MG, ORAL
     Route: 048
     Dates: start: 20011201

REACTIONS (1)
  - TENDONITIS [None]
